FAERS Safety Report 14788008 (Version 1)
Quarter: 2018Q2

REPORT INFORMATION
  Report Type: Spontaneous
  Country: US (occurrence: US)
  Receive Date: 20180422
  Receipt Date: 20180422
  Transmission Date: 20180711
  Serious: Yes (Other)
  Sender: FDA-Public Use
  Company Number: PHEH2018US014864

PATIENT
  Sex: Female

DRUGS (13)
  1. ILARIS [Suspect]
     Active Substance: CANAKINUMAB
     Dosage: 120 MG, Q4W
     Route: 065
  2. METHOTREXATE. [Concomitant]
     Active Substance: METHOTREXATE
     Indication: PRODUCT USED FOR UNKNOWN INDICATION
     Route: 065
  3. METHYLPREDNISOLONE. [Concomitant]
     Active Substance: METHYLPREDNISOLONE
     Indication: PRODUCT USED FOR UNKNOWN INDICATION
     Dosage: 12 MG, BID
     Route: 065
  4. ANAKINRA [Concomitant]
     Active Substance: ANAKINRA
     Indication: PRODUCT USED FOR UNKNOWN INDICATION
     Dosage: UNK
     Route: 065
  5. ANAKINRA [Concomitant]
     Active Substance: ANAKINRA
     Dosage: 2 MG/KG, QD
     Route: 065
  6. ILARIS [Suspect]
     Active Substance: CANAKINUMAB
     Indication: STILL^S DISEASE
     Dosage: 15 MG, QD
     Route: 065
  7. ILARIS [Suspect]
     Active Substance: CANAKINUMAB
     Dosage: 75 MG, Q4W
     Route: 065
  8. PREDNISONE. [Concomitant]
     Active Substance: PREDNISONE
     Dosage: 10 MG, QD
     Route: 065
  9. PREDNISONE. [Concomitant]
     Active Substance: PREDNISONE
     Indication: PRODUCT USED FOR UNKNOWN INDICATION
     Dosage: 30 MG, QD
     Route: 065
  10. TRIMETOPRIM SULFAMETOXAZOL [Concomitant]
     Active Substance: SULFAMETHOXAZOLE\TRIMETHOPRIM
     Indication: ANTIFUNGAL PROPHYLAXIS
     Dosage: (STOP AT AGE OF 3073 DAYS)
     Route: 065
  11. ILARIS [Suspect]
     Active Substance: CANAKINUMAB
     Dosage: 100 MG, Q4W
     Route: 065
  12. ILARIS [Suspect]
     Active Substance: CANAKINUMAB
     Dosage: 75 MG, Q4W
     Route: 065
  13. METHYLPREDNISOLONE. [Concomitant]
     Active Substance: METHYLPREDNISOLONE
     Dosage: 4 MG, QD
     Route: 065

REACTIONS (7)
  - Interstitial lung disease [Recovering/Resolving]
  - Clubbing [Unknown]
  - Dyspnoea [Unknown]
  - Tachypnoea [Unknown]
  - Hypoxia [Unknown]
  - Respiratory failure [Unknown]
  - Pulmonary hypertension [Recovering/Resolving]
